FAERS Safety Report 7414316-8 (Version None)
Quarter: 2011Q2

REPORT INFORMATION
  Report Type: 
  Country: None (occurrence: None)
  Receive Date: 20110411
  Receipt Date: 20110411
  Transmission Date: 20111010
  Serious: Yes (Other)
  Sender: FDA-Public Use
  Company Number: None

PATIENT
  Age: 51 Year
  Sex: Female

DRUGS (3)
  1. ESTRADIOL TRANSDERMAL SYSTEM [Suspect]
     Dosage: CHANGE WEEKLY ; NEEDS CLIMARA PATCH
     Route: 062
  2. ESTRADIOL PATCH [Concomitant]
  3. ESTRATEST H.S. [Concomitant]

REACTIONS (3)
  - PRODUCT SUBSTITUTION ISSUE [None]
  - JOB DISSATISFACTION [None]
  - ANGER [None]
